FAERS Safety Report 17327934 (Version 1)
Quarter: 2020Q1

REPORT INFORMATION
  Report Type: Spontaneous
  Country: US (occurrence: US)
  Receive Date: 20200127
  Receipt Date: 20200127
  Transmission Date: 20200409
  Serious: No
  Sender: FDA-Public Use
  Company Number: US-ABBVIE-19K-163-3014143-00

PATIENT
  Age: 61 Year
  Sex: Male
  Weight: 79.45 kg

DRUGS (3)
  1. BENADRYL [Concomitant]
     Active Substance: DIPHENHYDRAMINE HYDROCHLORIDE
     Indication: HYPERSENSITIVITY
  2. MAVYRET [Suspect]
     Active Substance: GLECAPREVIR\PIBRENTASVIR
     Dosage: WITH MEAL IN THE AFTERNOON
     Route: 048
     Dates: start: 20191108
  3. MAVYRET [Suspect]
     Active Substance: GLECAPREVIR\PIBRENTASVIR
     Indication: HEPATITIS C
     Dosage: WITH MEAL IN THE AFTERNOON
     Route: 048
     Dates: start: 20191011, end: 20191107

REACTIONS (1)
  - Non-24-hour sleep-wake disorder [Not Recovered/Not Resolved]

NARRATIVE: CASE EVENT DATE: 201910
